FAERS Safety Report 23687800 (Version 1)
Quarter: 2024Q1

REPORT INFORMATION
  Report Type: Spontaneous
  Country: BG (occurrence: None)
  Receive Date: 20240329
  Receipt Date: 20240329
  Transmission Date: 20240410
  Serious: Yes (Death, Hospitalization, Other)
  Sender: FDA-Public Use
  Company Number: 2024A075796

PATIENT
  Age: 26536 Day
  Sex: Female
  Weight: 82 kg

DRUGS (1)
  1. LYNPARZA [Suspect]
     Active Substance: OLAPARIB
     Indication: Ovarian cancer
     Route: 048
     Dates: start: 20240109, end: 20240306

REACTIONS (8)
  - Death [Fatal]
  - Pancytopenia [Unknown]
  - Diarrhoea [Unknown]
  - Aphthous ulcer [Unknown]
  - Metabolic acidosis [Unknown]
  - Sopor [Unknown]
  - Azotaemia [Unknown]
  - Diarrhoea infectious [Unknown]

NARRATIVE: CASE EVENT DATE: 20240316
